FAERS Safety Report 4390334-1 (Version None)
Quarter: 2004Q2

REPORT INFORMATION
  Report Type: 
  Country: None (occurrence: None)
  Receive Date: 20040630
  Receipt Date: 20040615
  Transmission Date: 20050107
  Serious: Yes (Hospitalization)
  Sender: FDA-Public Use
  Company Number: 199852

PATIENT
  Age: 55 Year
  Sex: Female
  Weight: 58.9676 kg

DRUGS (14)
  1. AVONEX [Suspect]
     Indication: MULTIPLE SCLEROSIS
     Dosage: 30 MCG QW IM
     Route: 030
     Dates: start: 20040301, end: 20040501
  2. DEPAKOTE [Concomitant]
  3. INDERAL [Concomitant]
  4. LOVENOX [Concomitant]
  5. ADDERALL 10 [Concomitant]
  6. THYROID MEDICATION [Concomitant]
  7. CELEXA [Concomitant]
  8. VISTARIL [Concomitant]
  9. ZYRTEC [Concomitant]
  10. XANAX [Concomitant]
  11. ZOCOR [Concomitant]
  12. TRAZODONE HCL [Concomitant]
  13. ARTHROTEC [Concomitant]
  14. NEURONTIN [Concomitant]

REACTIONS (5)
  - CONTUSION [None]
  - FACE INJURY [None]
  - FALL [None]
  - HERPES ZOSTER [None]
  - INFLUENZA LIKE ILLNESS [None]
